FAERS Safety Report 10189629 (Version 3)
Quarter: 2014Q3

REPORT INFORMATION
  Report Type: Spontaneous
  Country: JP (occurrence: JP)
  Receive Date: 20140522
  Receipt Date: 20140717
  Transmission Date: 20150326
  Serious: Yes (Hospitalization)
  Sender: FDA-Public Use
  Company Number: JP-GLAXOSMITHKLINE-B0995243A

PATIENT
  Age: 39 Year
  Sex: Female

DRUGS (2)
  1. SERETIDE [Suspect]
     Active Substance: FLUTICASONE FUROATE\SALMETEROL XINAFOATE
     Indication: ASTHMA
     Dosage: 250MCG TWICE PER DAY
     Route: 055
     Dates: end: 201406
  2. CLOMIFENE CITRATE [Concomitant]
     Active Substance: CLOMIPHENE
     Indication: INFERTILITY
     Route: 048

REACTIONS (2)
  - Blood corticotrophin decreased [Recovered/Resolved]
  - Adrenal insufficiency [Recovered/Resolved]
